FAERS Safety Report 9306200 (Version 1)
Quarter: 2013Q2

REPORT INFORMATION
  Report Type: Spontaneous
  Country: FR (occurrence: FR)
  Receive Date: 20130523
  Receipt Date: 20130523
  Transmission Date: 20140414
  Serious: Yes (Hospitalization)
  Sender: FDA-Public Use
  Company Number: FR-GLAXOSMITHKLINE-B0891283A

PATIENT
  Age: 83 Year
  Sex: Male

DRUGS (5)
  1. ARIXTRA [Suspect]
     Indication: PHLEBITIS
     Route: 058
     Dates: start: 201302, end: 20130309
  2. TAHOR [Concomitant]
     Route: 048
  3. AMLOR [Concomitant]
     Route: 048
  4. SIMVASTATINE [Concomitant]
     Route: 048
  5. ALLOPURINOL [Concomitant]
     Route: 048

REACTIONS (6)
  - Renal haematoma [Recovered/Resolved]
  - Anaemia [Recovered/Resolved]
  - Abdominal pain [Recovered/Resolved]
  - Haemodynamic instability [Recovered/Resolved]
  - Renal failure acute [Recovered/Resolved]
  - Acute respiratory failure [Recovered/Resolved]
